FAERS Safety Report 5606854-5 (Version None)
Quarter: 2008Q1

REPORT INFORMATION
  Report Type: 
  Country: None (occurrence: None)
  Receive Date: 20080129
  Receipt Date: 20080123
  Transmission Date: 20080703
  Serious: Yes (Other)
  Sender: FDA-Public Use
  Company Number: US-BOEHRINGER INGELHEIM GMBH, GERMANY-2008-DE-00449GD

PATIENT

DRUGS (4)
  1. ASPIRIN [Suspect]
     Indication: ANTIPLATELET THERAPY
     Dosage: 50 - 325 MG
  2. DIPYRIDAMOLE [Suspect]
     Indication: ANTIPLATELET THERAPY
  3. NAPROXEN [Suspect]
  4. IBUPROFEN [Suspect]
     Dosage: 200 - 800 MG/DOSE

REACTIONS (3)
  - CEREBRAL ISCHAEMIA [None]
  - DRUG INTERACTION [None]
  - PLATELET AGGREGATION INHIBITION [None]
